FAERS Safety Report 8345007-7 (Version None)
Quarter: 2012Q2

REPORT INFORMATION
  Report Type: 
  Country: None (occurrence: None)
  Receive Date: 20120508
  Receipt Date: 20120501
  Transmission Date: 20120825
  Serious: No
  Sender: FDA-Public Use
  Company Number: US-PFIZER INC-2012107841

PATIENT
  Sex: Female
  Weight: 74.8 kg

DRUGS (2)
  1. CELEXA [Concomitant]
     Dosage: 40 MG, UNK
     Dates: end: 20120201
  2. LO/OVRAL-28 [Suspect]
     Indication: CONTRACEPTION
     Dosage: ONE TABLET DAILY
     Dates: end: 20120201

REACTIONS (3)
  - DRUG INEFFECTIVE [None]
  - UNINTENDED PREGNANCY [None]
  - METRORRHAGIA [None]
